FAERS Safety Report 5893964-0 (Version None)
Quarter: 2008Q3

REPORT INFORMATION
  Report Type: 
  Country: None (occurrence: None)
  Receive Date: 20080923
  Receipt Date: 20080905
  Transmission Date: 20090109
  Serious: No
  Sender: FDA-Public Use
  Company Number: US-B.I. PHARMACEUTICALS,INC./RIDGEFIELD-2008-BP-12678BP

PATIENT
  Age: 76 Year
  Sex: Female

DRUGS (2)
  1. ZANTAC 150 [Suspect]
     Indication: DYSPEPSIA
     Dosage: 450MG
     Route: 048
     Dates: start: 20080809, end: 20080811
  2. BEXTRA [Concomitant]
     Indication: PAIN

REACTIONS (9)
  - ARTHRALGIA [None]
  - COUGH [None]
  - DIARRHOEA [None]
  - DYSPHONIA [None]
  - HOT FLUSH [None]
  - INSOMNIA [None]
  - NASAL CONGESTION [None]
  - NAUSEA [None]
  - PAIN IN EXTREMITY [None]
